FAERS Safety Report 13052523 (Version 1)
Quarter: 2016Q4

REPORT INFORMATION
  Report Type: Report from Study
  Country: None (occurrence: AR)
  Receive Date: 20161221
  Receipt Date: 20161221
  Transmission Date: 20170207
  Serious: Yes (Other)
  Sender: FDA-Public Use
  Company Number: AR-ABBVIE-16P-007-1818705-00

PATIENT
  Age: 67 Year
  Sex: Female

DRUGS (1)
  1. ZEMPLAR [Suspect]
     Active Substance: PARICALCITOL
     Indication: HYPERPARATHYROIDISM SECONDARY
     Route: 042
     Dates: start: 20141001

REACTIONS (3)
  - Pain [Unknown]
  - Fall [Unknown]
  - Wrist fracture [Recovering/Resolving]

NARRATIVE: CASE EVENT DATE: 20161120
